FAERS Safety Report 6916787-X (Version None)
Quarter: 2010Q3

REPORT INFORMATION
  Report Type: 
  Country: None (occurrence: None)
  Receive Date: 20100809
  Receipt Date: 20100809
  Transmission Date: 20110219
  Serious: Yes (Other)
  Sender: FDA-Public Use
  Company Number: None

PATIENT
  Sex: Male

DRUGS (1)
  1. ZEMURON [Suspect]
     Indication: ENDOTRACHEAL INTUBATION
     Dosage: 40MG ONCE IV
     Route: 042
     Dates: start: 20100723, end: 20100727

REACTIONS (1)
  - DRUG INEFFECTIVE [None]
